FAERS Safety Report 19180287 (Version 4)
Quarter: 2022Q2

REPORT INFORMATION
  Report Type: Spontaneous
  Country: US (occurrence: US)
  Receive Date: 20210426
  Receipt Date: 20220621
  Transmission Date: 20220721
  Serious: Yes (Other)
  Sender: FDA-Public Use
  Company Number: US-PFIZER INC-2021340495

PATIENT
  Age: 63 Year
  Sex: Female
  Weight: 95.238 kg

DRUGS (1)
  1. XELJANZ [Suspect]
     Active Substance: TOFACITINIB CITRATE
     Indication: Rheumatoid arthritis
     Dosage: 5 MG, 2X/DAY
     Route: 048
     Dates: start: 20210330

REACTIONS (7)
  - Hip arthroplasty [Unknown]
  - Pain [Unknown]
  - Confusional state [Unknown]
  - Asthenia [Unknown]
  - Arthritis [Not Recovered/Not Resolved]
  - Ingrowing nail [Unknown]
  - Pain in extremity [Unknown]

NARRATIVE: CASE EVENT DATE: 20220301
